FAERS Safety Report 7955985-3 (Version None)
Quarter: 2011Q4

REPORT INFORMATION
  Report Type: 
  Country: None (occurrence: None)
  Receive Date: 20111205
  Receipt Date: 20111128
  Transmission Date: 20120403
  Serious: No
  Sender: FDA-Public Use
  Company Number: US-BIOGENIDEC-2011BI045161

PATIENT
  Age: 49 Year
  Sex: Male

DRUGS (3)
  1. AVONEX [Suspect]
     Indication: MULTIPLE SCLEROSIS
     Route: 030
     Dates: start: 20110304
  2. BENADRYL [Concomitant]
     Indication: PREMEDICATION
  3. NAPROXEN (ALEVE) [Concomitant]
     Indication: PREMEDICATION

REACTIONS (5)
  - INJECTION SITE HAEMORRHAGE [None]
  - HANGOVER [None]
  - UNDERDOSE [None]
  - INJECTION SITE HAEMATOMA [None]
  - NO ADVERSE EVENT [None]
